FAERS Safety Report 22806861 (Version 2)
Quarter: 2024Q1

REPORT INFORMATION
  Report Type: Spontaneous
  Country: US (occurrence: US)
  Receive Date: 20230810
  Receipt Date: 20240108
  Transmission Date: 20240410
  Serious: Yes (Other)
  Sender: FDA-Public Use
  Company Number: US-009507513-2307USA012877

PATIENT
  Sex: Male

DRUGS (11)
  1. KEYTRUDA [Suspect]
     Active Substance: PEMBROLIZUMAB
     Indication: Renal cell carcinoma
     Dosage: DOSE NOT PROVIDED, Q3W
     Route: 065
     Dates: start: 202107
  2. CABOMETYX [Suspect]
     Active Substance: CABOZANTINIB S-MALATE
     Indication: Renal cell carcinoma
     Dosage: 40 MILLIGRAM, FREQUENCY UNKNOWN
     Route: 048
     Dates: start: 202107
  3. CABOMETYX [Suspect]
     Active Substance: CABOZANTINIB S-MALATE
     Indication: Metastases to bone
     Dosage: 20 MILLIGRAM, QD, DOSE DECREASED
     Route: 048
     Dates: start: 20230607
  4. CABOMETYX [Suspect]
     Active Substance: CABOZANTINIB S-MALATE
     Dosage: 20 MG, QD 3 WEEKS ON AND1 WEEK OFF (ROUTE NOT PROVIDED) (AT BEDTIME)
     Dates: start: 2023
  5. LISINOPRIL [Concomitant]
     Active Substance: LISINOPRIL
  6. XTAMPZA ER [Concomitant]
     Active Substance: OXYCODONE
  7. OXYCODONE [Concomitant]
     Active Substance: OXYCODONE
  8. RITALIN [Concomitant]
     Active Substance: METHYLPHENIDATE HYDROCHLORIDE
  9. ONDANSETRON [Concomitant]
     Active Substance: ONDANSETRON
  10. LORAZEPAM [Concomitant]
     Active Substance: LORAZEPAM
  11. SENNA S [Concomitant]
     Active Substance: DOCUSATE SODIUM\SENNA LEAF
     Dosage: UNK

REACTIONS (14)
  - Delirium [Not Recovered/Not Resolved]
  - Stomatitis [Not Recovered/Not Resolved]
  - Palmar-plantar erythrodysaesthesia syndrome [Not Recovered/Not Resolved]
  - Taste disorder [Not Recovered/Not Resolved]
  - Nausea [Not Recovered/Not Resolved]
  - Constipation [Not Recovered/Not Resolved]
  - Fatigue [Not Recovered/Not Resolved]
  - Dysgeusia [Not Recovered/Not Resolved]
  - Diarrhoea [Not Recovered/Not Resolved]
  - Sinusitis [Recovered/Resolved]
  - Decreased appetite [Unknown]
  - Blood creatinine increased [Unknown]
  - Cancer pain [Unknown]
  - Product use issue [Unknown]

NARRATIVE: CASE EVENT DATE: 20210701
